FAERS Safety Report 4997441-0 (Version None)
Quarter: 2006Q1

REPORT INFORMATION
  Report Type: 
  Country: None (occurrence: None)
  Receive Date: 20060315
  Receipt Date: 20051130
  Transmission Date: 20060701
  Serious: Yes (Other)
  Sender: FDA-Public Use
  Company Number: 427233

PATIENT
  Sex: Female

DRUGS (1)
  1. BONIVA [Suspect]
     Indication: DRUG USE FOR UNKNOWN INDICATION
     Dates: start: 20050901

REACTIONS (5)
  - EYE IRRITATION [None]
  - PAIN IN EXTREMITY [None]
  - SHOULDER PAIN [None]
  - VISION BLURRED [None]
  - VISUAL DISTURBANCE [None]
